FAERS Safety Report 6062786-2 (Version None)
Quarter: 2009Q1

REPORT INFORMATION
  Report Type: 
  Country: None (occurrence: None)
  Receive Date: 20090203
  Receipt Date: 20090128
  Transmission Date: 20090719
  Serious: Yes (Hospitalization, Other)
  Sender: FDA-Public Use
  Company Number: KR-JNJFOC-20080806509

PATIENT
  Sex: Female
  Weight: 53.5 kg

DRUGS (14)
  1. PALIPERIDONE [Suspect]
     Route: 048
  2. PALIPERIDONE [Suspect]
     Route: 048
  3. PALIPERIDONE [Suspect]
     Route: 048
  4. PALIPERIDONE [Suspect]
     Indication: SCHIZOPHRENIA
     Route: 048
  5. LORAVAN [Concomitant]
  6. LORAVAN [Concomitant]
  7. LORAVAN [Concomitant]
  8. LORAVAN [Concomitant]
     Indication: DEPRESSION
  9. LORAVAN [Concomitant]
     Indication: ANXIETY
  10. RIVOTRIL [Concomitant]
  11. RIVOTRIL [Concomitant]
  12. RIVOTRIL [Concomitant]
     Indication: PARTIAL SEIZURES
  13. MAGNESIUM OXIDE [Concomitant]
     Indication: DRUG USE FOR UNKNOWN INDICATION
  14. BENZTROPINE [Concomitant]
     Indication: DRUG USE FOR UNKNOWN INDICATION

REACTIONS (1)
  - RHABDOMYOLYSIS [None]
